FAERS Safety Report 9730431 (Version 1)
Quarter: 2013Q4

REPORT INFORMATION
  Report Type: Report from Study
  Country: JP (occurrence: JP)
  Receive Date: 20131202
  Receipt Date: 20131202
  Transmission Date: 20140711
  Serious: Yes (Hospitalization)
  Sender: FDA-Public Use
  Company Number: PHHY2013JP133364

PATIENT
  Age: 56 Year
  Sex: Male

DRUGS (33)
  1. TASIGNA [Suspect]
     Indication: CHRONIC MYELOID LEUKAEMIA
     Dosage: 200 MG, DAILY
     Route: 048
     Dates: start: 20100311, end: 20100531
  2. TASIGNA [Suspect]
     Dosage: 200 MG, DAILY
     Route: 048
     Dates: start: 20100927
  3. SPRYCEL//DASATINIB [Suspect]
     Indication: CHRONIC MYELOID LEUKAEMIA
     Dosage: 20 MG, QD
     Route: 048
     Dates: start: 20090624, end: 20090629
  4. SPRYCEL//DASATINIB [Suspect]
     Dosage: 50 MG, QD
     Route: 048
     Dates: start: 20090630, end: 20090706
  5. SPRYCEL//DASATINIB [Suspect]
     Dosage: 70 MG, QD
     Route: 048
     Dates: start: 20090707, end: 20090721
  6. SPRYCEL//DASATINIB [Suspect]
     Dosage: 100 MG, QD
     Route: 048
     Dates: start: 20090722, end: 20090727
  7. SPRYCEL//DASATINIB [Suspect]
     Dosage: 50 MG, QD
     Route: 048
     Dates: start: 20090728
  8. SPRYCEL//DASATINIB [Suspect]
     Dosage: 100 MG, QD
     Dates: start: 20090729, end: 20090816
  9. SPRYCEL//DASATINIB [Suspect]
     Dosage: 70 MG, QD
     Dates: start: 20090817, end: 20090827
  10. SPRYCEL//DASATINIB [Suspect]
     Dosage: 70 MG, QD
     Dates: start: 20090921, end: 20091012
  11. SPRYCEL//DASATINIB [Suspect]
     Dosage: 70 MG, TWICE WEEKLY
     Dates: start: 20091021, end: 20091101
  12. SPRYCEL//DASATINIB [Suspect]
     Dosage: 70 MG THREE TIMES WEEKLY
     Dates: start: 20091102, end: 20091115
  13. SPRYCEL//DASATINIB [Suspect]
     Dosage: 70 MG TWICE WEEKLY
     Dates: start: 20091116, end: 20091121
  14. SPRYCEL//DASATINIB [Suspect]
     Dosage: 50 MG, QD
     Dates: start: 20091128, end: 20091217
  15. SPRYCEL//DASATINIB [Suspect]
     Dosage: 50 MG, QOD
     Dates: start: 20091218, end: 20091227
  16. SPRYCEL//DASATINIB [Suspect]
     Dosage: 30 MG, TID
     Dates: start: 20130318
  17. SPRYCEL//DASATINIB [Suspect]
     Dosage: 50 MG, QD
     Dates: end: 20110627
  18. SPRYCEL//DASATINIB [Suspect]
     Dosage: 150 MG /WEEK
     Dates: start: 20110920, end: 20111021
  19. BUSULFEX [Suspect]
     Indication: CHRONIC MYELOID LEUKAEMIA
     Dosage: 196 MG, DAILY
     Route: 042
     Dates: start: 20111013, end: 20111017
  20. FLUDARA [Suspect]
     Indication: CHRONIC MYELOID LEUKAEMIA
     Dosage: 35 MG, DAILY
     Route: 042
     Dates: start: 20111013, end: 20111017
  21. CYMERIN [Suspect]
     Indication: CHRONIC MYELOID LEUKAEMIA
     Dosage: 200 MG, DAILY
     Route: 042
     Dates: start: 20111011
  22. EPINASTINE HCL [Concomitant]
     Dosage: UNK
     Dates: end: 20090911
  23. LOXOPROFEN SODIUM [Concomitant]
     Dosage: UNK
     Dates: end: 20090629
  24. ALLOPURINOL [Concomitant]
     Dosage: UNK
     Dates: end: 20090921
  25. AMLODIPINE BESYLATE [Concomitant]
     Dosage: UNK
     Dates: start: 20100212
  26. REBAMIPIDE [Concomitant]
     Dosage: UNK
     Dates: start: 20100301, end: 20100419
  27. CARBAZOCHROME SODIUM SULFONATE [Concomitant]
     Dosage: UNK
     Dates: start: 20090825, end: 20090909
  28. TENORMIN [Concomitant]
     Dosage: UNK
     Dates: start: 20101213
  29. DEXAMETHASONE [Concomitant]
  30. METHOTREXATE [Concomitant]
     Dosage: UNK
     Dates: start: 20111021
  31. SOLU-CORTEF [Concomitant]
     Dosage: UNK
     Dates: start: 20110719, end: 20111031
  32. SANDIMMUN [Concomitant]
     Dosage: UNK
     Dates: start: 20111019, end: 20111019
  33. URSO [Concomitant]
     Dosage: UNK
     Dates: start: 20111010, end: 20111031

REACTIONS (4)
  - Febrile neutropenia [Not Recovered/Not Resolved]
  - White blood cell count decreased [Recovered/Resolved]
  - Neutrophil count decreased [Recovered/Resolved]
  - Platelet count decreased [Not Recovered/Not Resolved]
